FAERS Safety Report 15205684 (Version 1)
Quarter: 2018Q3

REPORT INFORMATION
  Report Type: Spontaneous
  Country: FR (occurrence: FR)
  Receive Date: 20180727
  Receipt Date: 20180727
  Transmission Date: 20181010
  Serious: Yes (Hospitalization)
  Sender: FDA-Public Use
  Company Number: FR-ROCHE-2160210

PATIENT
  Age: 66 Year
  Sex: Male
  Weight: 72 kg

DRUGS (7)
  1. AMLOR [Concomitant]
     Active Substance: AMLODIPINE BESYLATE
     Indication: HYPERTENSION
     Route: 048
  2. BACTRIM [Suspect]
     Active Substance: SULFAMETHOXAZOLE\TRIMETHOPRIM
     Indication: ANTIBIOTIC PROPHYLAXIS
     Route: 048
     Dates: start: 20180521, end: 20180531
  3. CORTANCYL [Concomitant]
     Active Substance: PREDNISONE
     Indication: VASCULITIS
     Route: 048
     Dates: start: 20180421
  4. ZELITREX [Suspect]
     Active Substance: VALACYCLOVIR HYDROCHLORIDE
     Indication: PRODUCT USED FOR UNKNOWN INDICATION
     Route: 048
     Dates: start: 20180526
  5. RITUXIMAB. [Suspect]
     Active Substance: RITUXIMAB
     Indication: RENAL VASCULITIS
     Route: 042
     Dates: start: 20180523
  6. SPECIAFOLDINE [Concomitant]
     Active Substance: FOLIC ACID
     Route: 048
  7. PANTOPRAZOLE [Concomitant]
     Active Substance: PANTOPRAZOLE
     Route: 048

REACTIONS (1)
  - Renal impairment [Recovering/Resolving]

NARRATIVE: CASE EVENT DATE: 20180531
